FAERS Safety Report 10756778 (Version 4)
Quarter: 2015Q2

REPORT INFORMATION
  Report Type: Spontaneous
  Country: NL (occurrence: NL)
  Receive Date: 20150203
  Receipt Date: 20150422
  Transmission Date: 20150821
  Serious: Yes (Hospitalization)
  Sender: FDA-Public Use
  Company Number: NL-ROCHE-1529670

PATIENT
  Age: 34 Year
  Sex: Male

DRUGS (8)
  1. PREGABALINE [Concomitant]
     Active Substance: PREGABALIN
     Route: 065
  2. LYRICA [Concomitant]
     Active Substance: PREGABALIN
  3. PANTOPRAZOLE [Concomitant]
     Active Substance: PANTOPRAZOLE SODIUM
  4. COTRIMAZOL [Concomitant]
  5. XOLAIR [Suspect]
     Active Substance: OMALIZUMAB
     Indication: CHRONIC SPONTANEOUS URTICARIA
     Dosage: DOSE: 150 MG/ML?2 INJECTIONS OF 150MG DAILY
     Route: 030
     Dates: start: 20150112, end: 20150112
  6. LEVOCETIRIZIN [Concomitant]
     Route: 065
  7. ALENDRONIC ACID [Concomitant]
     Active Substance: ALENDRONIC ACID
  8. CALCICHEW [Concomitant]
     Active Substance: CALCIUM CARBONATE

REACTIONS (19)
  - Muscle spasms [Recovered/Resolved with Sequelae]
  - Face oedema [Unknown]
  - Abdominal pain [Recovered/Resolved]
  - Hyperventilation [Unknown]
  - Tongue oedema [Unknown]
  - Erythema [Unknown]
  - Incorrect route of drug administration [Unknown]
  - Dyspnoea [Recovered/Resolved with Sequelae]
  - Angioedema [Recovered/Resolved]
  - Stridor [Unknown]
  - Urticaria [Recovered/Resolved with Sequelae]
  - Haemoglobin decreased [Unknown]
  - Tongue spasm [Unknown]
  - Swollen tongue [Unknown]
  - Flushing [Unknown]
  - Anaphylactic reaction [Recovered/Resolved with Sequelae]
  - Amnesia [Unknown]
  - Injection site urticaria [Unknown]
  - Fatigue [Unknown]

NARRATIVE: CASE EVENT DATE: 20150112
